FAERS Safety Report 23193411 (Version 1)
Quarter: 2023Q4

REPORT INFORMATION
  Report Type: Spontaneous
  Country: US (occurrence: US)
  Receive Date: 20231116
  Receipt Date: 20231116
  Transmission Date: 20240110
  Serious: Yes (Life-Threatening, Hospitalization)
  Sender: FDA-Public Use
  Company Number: US-MYLANLABS-2023M1121900

PATIENT
  Age: 6 Decade
  Sex: Female

DRUGS (1)
  1. AMIODARONE [Suspect]
     Active Substance: AMIODARONE
     Indication: Tachycardia
     Dosage: 150 MILLIGRAM, INTRAVENOUS BOLUS
     Route: 042

REACTIONS (1)
  - Drug ineffective [Unknown]
